FAERS Safety Report 6441924-3 (Version None)
Quarter: 2009Q4

REPORT INFORMATION
  Report Type: 
  Country: None (occurrence: None)
  Receive Date: 20091116
  Receipt Date: 20091102
  Transmission Date: 20100525
  Serious: Yes (Hospitalization)
  Sender: FDA-Public Use
  Company Number: DE-MYLANLABS-2009S1019153

PATIENT
  Age: 39 Year
  Sex: Female

DRUGS (10)
  1. FUROSEMID [Suspect]
     Indication: DRUG USE FOR UNKNOWN INDICATION
     Dates: start: 20070527, end: 20070627
  2. ERGENYL CHRONO [Interacting]
     Indication: DRUG USE FOR UNKNOWN INDICATION
     Dates: start: 20070529, end: 20070627
  3. ERGENYL CHRONO [Interacting]
  4. LEPONEX [Interacting]
     Indication: DRUG USE FOR UNKNOWN INDICATION
     Dates: start: 20070527, end: 20070627
  5. IMPROMEN /00568801/ [Interacting]
     Indication: DRUG USE FOR UNKNOWN INDICATION
     Dates: start: 20070527, end: 20070627
  6. ERGENYL CHRONO [Concomitant]
     Dates: start: 20070101, end: 20070528
  7. GASTROZEPIN [Concomitant]
     Indication: DRUG USE FOR UNKNOWN INDICATION
     Dates: start: 20070527, end: 20070627
  8. PANTOZOL [Concomitant]
     Indication: DRUG USE FOR UNKNOWN INDICATION
     Dates: start: 20070527, end: 20070627
  9. FOLSAN [Concomitant]
     Indication: DRUG USE FOR UNKNOWN INDICATION
     Dates: start: 20070527, end: 20070627
  10. ABILIFY [Concomitant]
     Indication: DRUG USE FOR UNKNOWN INDICATION
     Dates: start: 20070528, end: 20070531

REACTIONS (2)
  - DRUG INTERACTION [None]
  - ELECTROCARDIOGRAM QT PROLONGED [None]
